FAERS Safety Report 6069225-6 (Version None)
Quarter: 2009Q1

REPORT INFORMATION
  Report Type: 
  Country: None (occurrence: None)
  Receive Date: 20090206
  Receipt Date: 20090130
  Transmission Date: 20090719
  Serious: Yes (Other)
  Sender: FDA-Public Use
  Company Number: PHBS2009JP00688

PATIENT
  Age: 18 Year
  Sex: Male

DRUGS (2)
  1. CYCLOSPORINE [Suspect]
     Indication: PYODERMA GANGRENOSUM
     Dosage: 5 MG/KG DAILY
  2. METHYLPREDNISOLONE 4MG TAB [Concomitant]
     Dosage: 1G/DAY

REACTIONS (3)
  - ARTHRITIS [None]
  - PYREXIA [None]
  - SKIN ULCER [None]
